FAERS Safety Report 6915011-1 (Version None)
Quarter: 2010Q3

REPORT INFORMATION
  Report Type: 
  Country: None (occurrence: None)
  Receive Date: 20100809
  Receipt Date: 20100726
  Transmission Date: 20110219
  Serious: Yes (Hospitalization, Disabling)
  Sender: FDA-Public Use
  Company Number: IT-MYLANLABS-2010S1013295

PATIENT
  Age: 59 Year
  Sex: Male

DRUGS (6)
  1. ATORVASTATIN [Interacting]
     Indication: DYSLIPIDAEMIA
     Route: 065
  2. CLARITHROMYCIN [Suspect]
     Indication: LUNG INFECTION
     Route: 065
  3. INSULIN LISPRO [Concomitant]
     Indication: TYPE 2 DIABETES MELLITUS
     Route: 065
  4. INSULIN GLARGINE [Concomitant]
     Indication: TYPE 2 DIABETES MELLITUS
     Dosage: TOTAL DAILY INSULIN DOSE 48U
     Route: 065
  5. RAMIPRIL [Concomitant]
     Route: 065
  6. AMLODIPINE [Concomitant]
     Route: 065

REACTIONS (3)
  - DRUG INTERACTION [None]
  - MONONEUROPATHY [None]
  - RHABDOMYOLYSIS [None]
